FAERS Safety Report 23038086 (Version 2)
Quarter: 2024Q4

REPORT INFORMATION
  Report Type: Spontaneous
  Country: US (occurrence: US)
  Receive Date: 20231006
  Receipt Date: 20241007
  Transmission Date: 20250115
  Serious: No
  Sender: RECKITT BENCKISER
  Company Number: US-Indivior Limited-INDV-137620-2023

PATIENT
  Age: 32 Year
  Sex: Female
  Weight: 59.864 kg

DRUGS (4)
  1. SUBLOCADE [Suspect]
     Active Substance: BUPRENORPHINE
     Indication: Drug dependence
     Dosage: 50 MILLIGRAM, QMO
     Route: 058
     Dates: start: 20191025
  2. SUBLOCADE [Suspect]
     Active Substance: BUPRENORPHINE
     Dosage: 50 MILLIGRAM, EVERY 6 TO 8 WEEKS
     Route: 058
  3. BUSPIRONE [Concomitant]
     Active Substance: BUSPIRONE HYDROCHLORIDE
     Indication: Generalised anxiety disorder
     Dosage: 20 MILLIGRAM, UNKNOWN
     Route: 065
  4. ONDANSETRON [Concomitant]
     Active Substance: ONDANSETRON
     Indication: Nausea
     Dosage: 4 MILLIGRAM, UNKNOWN
     Route: 065

REACTIONS (4)
  - Off label use [Not Recovered/Not Resolved]
  - Inappropriate schedule of product administration [Not Recovered/Not Resolved]
  - Drug withdrawal syndrome [Unknown]
  - Maternal exposure during pregnancy [Recovered/Resolved]

NARRATIVE: CASE EVENT DATE: 20190101
